FAERS Safety Report 16735496 (Version 1)
Quarter: 2019Q4

REPORT INFORMATION
  Report Type: Spontaneous
  Country: US (occurrence: US)
  Receive Date: 20190823
  Receipt Date: 20190823
  Transmission Date: 20200122
  Serious: No
  Sender: FDA-Public Use
  Company Number: None

PATIENT
  Age: 69 Year
  Sex: Male
  Weight: 110.25 kg

DRUGS (10)
  1. AMLIPODINE [Concomitant]
  2. MULTIFUSION GUMMY VITAMINS, [Concomitant]
  3. OYCONTIN 10 MG TAB-12 HOUR RELEASE, [Concomitant]
  4. BISOPROLOL [Concomitant]
     Active Substance: BISOPROLOL
  5. OXYCODONE-APAP 10-325 MG TAB [Suspect]
     Active Substance: ACETAMINOPHEN\OXYCODONE HYDROCHLORIDE
     Indication: CANCER PAIN
     Dosage: ?          QUANTITY:2 TABLET(S);?
     Route: 048
     Dates: start: 20190720
  6. FLOVENT [Concomitant]
     Active Substance: FLUTICASONE PROPIONATE
  7. VALACYCLOIR 1 GM TAB, [Concomitant]
  8. SENECOT S [Concomitant]
  9. CYCLOBENZAPRINE 10 MG TAB [Concomitant]
  10. ASPIRIN. [Concomitant]
     Active Substance: ASPIRIN

REACTIONS (8)
  - Mood altered [None]
  - Anger [None]
  - Inadequate analgesia [None]
  - Disturbance in attention [None]
  - Product substitution issue [None]
  - Therapeutic product effect decreased [None]
  - Irritability [None]
  - Memory impairment [None]

NARRATIVE: CASE EVENT DATE: 20190720
